FAERS Safety Report 17225193 (Version 1)
Quarter: 2019Q4

REPORT INFORMATION
  Report Type: Spontaneous
  Country: US (occurrence: US)
  Receive Date: 20191209
  Receipt Date: 20191209
  Transmission Date: 20200122
  Serious: No
  Sender: FDA-Public Use
  Company Number: None

PATIENT
  Age: 17 Year
  Sex: Female
  Weight: 58.06 kg

DRUGS (4)
  1. VITAMIN D [Concomitant]
     Active Substance: VITAMIN D NOS
  2. NEXPLANON [Suspect]
     Active Substance: ETONOGESTREL
     Indication: CONTRACEPTION
     Dosage: ?          OTHER ROUTE:SURGICALLY PLACE UNDER THE SKIN OF LEFT?
     Dates: start: 20191121, end: 20191130
  3. CALCIUM [Concomitant]
     Active Substance: CALCIUM
  4. EFFEXOR XR [Concomitant]
     Active Substance: VENLAFAXINE HYDROCHLORIDE

REACTIONS (10)
  - Breast tenderness [None]
  - Dissociation [None]
  - Nausea [None]
  - Neck pain [None]
  - Depression [None]
  - Headache [None]
  - Visual impairment [None]
  - Flatulence [None]
  - Dry mouth [None]
  - Back pain [None]

NARRATIVE: CASE EVENT DATE: 20191130
